FAERS Safety Report 11318043 (Version 1)
Quarter: 2015Q3

REPORT INFORMATION
  Report Type: Spontaneous
  Country: US (occurrence: US)
  Receive Date: 20150728
  Receipt Date: 20150728
  Transmission Date: 20151125
  Serious: Yes (Death)
  Sender: FDA-Public Use
  Company Number: US-CELGENE-USA-2015074039

PATIENT
  Age: 75 Year
  Sex: Female

DRUGS (2)
  1. THALOMID [Suspect]
     Active Substance: THALIDOMIDE
     Route: 048
     Dates: start: 201506, end: 2015
  2. THALOMID [Suspect]
     Active Substance: THALIDOMIDE
     Indication: ARTERIOVENOUS MALFORMATION
     Route: 048
     Dates: start: 201502

REACTIONS (2)
  - Anaemia [Fatal]
  - Haemorrhage [Fatal]

NARRATIVE: CASE EVENT DATE: 20150715
